FAERS Safety Report 22656579 (Version 1)
Quarter: 2023Q2

REPORT INFORMATION
  Report Type: Report from Study
  Country: US (occurrence: US)
  Receive Date: 20230630
  Receipt Date: 20230630
  Transmission Date: 20230722
  Serious: Yes (Other)
  Sender: FDA-Public Use
  Company Number: US-ABBVIE-5307844

PATIENT
  Sex: Female

DRUGS (1)
  1. SKYRIZI [Suspect]
     Active Substance: RISANKIZUMAB-RZAA
     Indication: Crohn^s disease
     Route: 058
     Dates: start: 20230130

REACTIONS (5)
  - Hepatic cirrhosis [Unknown]
  - Constipation [Unknown]
  - Chest pain [Unknown]
  - Arthralgia [Unknown]
  - Migraine [Unknown]

NARRATIVE: CASE EVENT DATE: 20230101
